FAERS Safety Report 21672082 (Version 2)
Quarter: 2022Q4

REPORT INFORMATION
  Report Type: Other
  Country: MX (occurrence: None)
  Receive Date: 20221202
  Receipt Date: 20221212
  Transmission Date: 20230113
  Serious: Yes (Other)
  Sender: FDA-Public Use
  Company Number: MX-ROCHE-3229121

PATIENT
  Sex: Female
  Weight: 70 kg

DRUGS (6)
  1. KADCYLA [Suspect]
     Active Substance: ADO-TRASTUZUMAB EMTANSINE
     Indication: Breast cancer
     Dosage: FORM OF ADMIN: TRASTUZUMAB EMTANSINA 100 MG
     Route: 042
     Dates: start: 20170403, end: 20220518
  2. PERTUZUMAB [Suspect]
     Active Substance: PERTUZUMAB
     Indication: Breast cancer
     Dosage: 1 BOX
     Route: 042
     Dates: start: 2015, end: 2017
  3. TRASTUZUMAB [Suspect]
     Active Substance: TRASTUZUMAB
     Indication: Breast cancer
     Dosage: 1 BOX
     Route: 041
     Dates: start: 2015, end: 2017
  4. DAPAGLIFLOZIN [Concomitant]
     Active Substance: DAPAGLIFLOZIN
  5. SPIRONOLACTONE [Concomitant]
     Active Substance: SPIRONOLACTONE
  6. CLOPIDOGREL [Concomitant]
     Active Substance: CLOPIDOGREL BISULFATE

REACTIONS (8)
  - Pulmonary embolism [Recovering/Resolving]
  - Pulmonary fibrosis [Recovering/Resolving]
  - Arrhythmia [Recovering/Resolving]
  - Respiratory failure [Recovering/Resolving]
  - Skin cancer [Recovering/Resolving]
  - Ejection fraction decreased [Recovering/Resolving]
  - Cough [Recovering/Resolving]
  - Hepatic steatosis [Recovering/Resolving]

NARRATIVE: CASE EVENT DATE: 20160101
